FAERS Safety Report 9239714 (Version 1)
Quarter: 2013Q2

REPORT INFORMATION
  Report Type: Spontaneous
  Country: US (occurrence: US)
  Receive Date: 20130418
  Receipt Date: 20130418
  Transmission Date: 20140414
  Serious: No
  Sender: FDA-Public Use
  Company Number: US-PFIZER INC-2013122462

PATIENT
  Age: 56 Year
  Sex: Female
  Weight: 54.42 kg

DRUGS (2)
  1. LYRICA [Suspect]
     Indication: FIBROMYALGIA
     Dosage: 50 MG, 1X/DAY
     Dates: start: 2008, end: 201304
  2. PERCOCET [Concomitant]
     Indication: BACK PAIN
     Dosage: [OXYCODONE 10MG]/[ACETAMINOPHEN 325MG],3X/DAY

REACTIONS (1)
  - Pain [Not Recovered/Not Resolved]
